FAERS Safety Report 8010144-3 (Version None)
Quarter: 2011Q4

REPORT INFORMATION
  Report Type: 
  Country: None (occurrence: None)
  Receive Date: 20111123
  Receipt Date: 20110822
  Transmission Date: 20120403
  Serious: No
  Sender: FDA-Public Use
  Company Number: 334296

PATIENT
  Age: 79 Year
  Sex: Male

DRUGS (3)
  1. AMARYL [Concomitant]
  2. ACTOS [Concomitant]
  3. VICTOZA [Suspect]
     Indication: OBESITY
     Dosage: 1.2 MG, QD, SUBCUTANEOUS
     Route: 058

REACTIONS (3)
  - INCORRECT DOSE ADMINISTERED [None]
  - WEIGHT DECREASED [None]
  - DYSPEPSIA [None]
